FAERS Safety Report 14404704 (Version 4)
Quarter: 2018Q2

REPORT INFORMATION
  Report Type: Report from Study
  Country: None (occurrence: US)
  Receive Date: 20180118
  Receipt Date: 20180621
  Transmission Date: 20180711
  Serious: Yes (Other)
  Sender: FDA-Public Use
  Company Number: US-ABBVIE-18K-163-2219854-00

PATIENT
  Age: 58 Year
  Sex: Male

DRUGS (4)
  1. HUMIRA [Suspect]
     Active Substance: ADALIMUMAB
     Indication: CROHN^S DISEASE
  2. HUMIRA [Suspect]
     Active Substance: ADALIMUMAB
     Indication: RHEUMATOID ARTHRITIS
  3. HUMIRA [Suspect]
     Active Substance: ADALIMUMAB
     Indication: HIDRADENITIS
     Route: 058
  4. HUMIRA [Suspect]
     Active Substance: ADALIMUMAB
     Indication: ANKYLOSING SPONDYLITIS
     Route: 058

REACTIONS (20)
  - Intervertebral disc degeneration [Unknown]
  - Constipation [Unknown]
  - Facet joint syndrome [Unknown]
  - Asthenia [Unknown]
  - Paraesthesia [Unknown]
  - Back pain [Unknown]
  - Crohn^s disease [Unknown]
  - Injection site pain [Unknown]
  - Spinal fusion acquired [Recovering/Resolving]
  - Neck pain [Unknown]
  - Therapeutic response shortened [Unknown]
  - Arthralgia [Unknown]
  - Muscular weakness [Unknown]
  - Pain [Unknown]
  - Spinal pain [Unknown]
  - Ankylosing spondylitis [Recovering/Resolving]
  - Sensitivity to weather change [Unknown]
  - Hypothyroidism [Unknown]
  - Hypoaesthesia [Unknown]
  - Pain in extremity [Unknown]

NARRATIVE: CASE EVENT DATE: 201603
